FAERS Safety Report 14037379 (Version 7)
Quarter: 2019Q4

REPORT INFORMATION
  Report Type: Spontaneous
  Country: KR (occurrence: KR)
  Receive Date: 20171004
  Receipt Date: 20191104
  Transmission Date: 20200122
  Serious: Yes (Other)
  Sender: FDA-Public Use
  Company Number: KR-009507513-1708KOR009978

PATIENT
  Age: 24 Year
  Sex: Female
  Weight: 51.9 kg

DRUGS (32)
  1. TACENOL [Concomitant]
     Indication: ANTIPYRESIS
  2. DICKNOL [Concomitant]
     Active Substance: DICLOFENAC DEANOL
     Indication: ANALGESIC THERAPY
     Dosage: 2 ML (1 AMPLE), ONCE DAILY
     Route: 030
     Dates: start: 20170816, end: 20170901
  3. DENOGAN [Concomitant]
     Active Substance: PROPACETAMOL HYDROCHLORIDE
     Indication: ANTIINFLAMMATORY THERAPY
     Dosage: 1 G (1 VIAL), ONCE DAILY
     Route: 042
     Dates: start: 20170816, end: 20170816
  4. DENOGAN [Concomitant]
     Active Substance: PROPACETAMOL HYDROCHLORIDE
     Indication: ANALGESIC THERAPY
     Dosage: 1 VIAL, ONCE DAILY
     Route: 042
     Dates: start: 20170830, end: 20170901
  5. AMPHOGEL [Concomitant]
     Indication: PROPHYLAXIS
     Dosage: 1 TABLET, THREE TIMES A DAY
     Route: 048
     Dates: start: 20170814, end: 20170822
  6. ZYLORIC [Concomitant]
     Active Substance: ALLOPURINOL
     Indication: TUMOUR LYSIS SYNDROME
     Dosage: 1 TABLET, THREE TIMES A DAY
     Route: 048
     Dates: start: 20170814, end: 20170822
  7. CYTOSAR U [Concomitant]
     Indication: ACUTE MYELOID LEUKAEMIA
     Dosage: 296 MILLIGRAM, QD
     Route: 042
     Dates: start: 20170814, end: 20170820
  8. TRIDOL (TRAMADOL HYDROCHLORIDE) [Concomitant]
     Indication: ACUTE LEUKAEMIA
  9. TABAXIN [Concomitant]
     Active Substance: PIPERACILLIN SODIUM\TAZOBACTAM SODIUM
     Indication: INFECTION
     Dosage: 1 DOSAGE FORM
     Route: 042
     Dates: start: 20170814, end: 20170823
  10. TACENOL [Concomitant]
     Indication: ANALGESIC THERAPY
     Dosage: 2 TABLETS, ONCE DAILY
     Route: 048
     Dates: start: 20170828, end: 20170828
  11. MACPERAN [Concomitant]
     Active Substance: METOCLOPRAMIDE HYDROCHLORIDE
     Indication: PROPHYLAXIS OF NAUSEA AND VOMITING
     Dosage: 1 AMPLE, QID (4 TIMES DAY)
     Route: 042
     Dates: start: 20170815, end: 20170904
  12. DICKNOL [Concomitant]
     Active Substance: DICLOFENAC DEANOL
     Indication: ANTIPYRESIS
  13. DENOGAN [Concomitant]
     Active Substance: PROPACETAMOL HYDROCHLORIDE
     Indication: ANTIPYRESIS
     Dosage: 1 VIAL, ONCE DAILY
     Route: 042
     Dates: start: 20170818, end: 20170818
  14. CITOPCIN (CIPROFLOXACIN HYDROCHLORIDE) [Concomitant]
     Active Substance: CIPROFLOXACIN HYDROCHLORIDE
     Indication: ANTIBIOTIC THERAPY
     Dosage: 2 TABLETS, TWICE A DAY
     Route: 048
     Dates: start: 20170816
  15. ALOXI [Concomitant]
     Active Substance: PALONOSETRON HYDROCHLORIDE
     Indication: PROPHYLAXIS OF NAUSEA AND VOMITING
     Dosage: 0.25 MG, ONCE DAILY
     Route: 042
     Dates: start: 20170814, end: 20170814
  16. TRIDOL (TRAMADOL HYDROCHLORIDE) [Concomitant]
     Indication: ANALGESIC THERAPY
     Dosage: 50 MG (1 AMPLE), TID
     Route: 042
     Dates: start: 20170815, end: 20170823
  17. NOXAFIL [Suspect]
     Active Substance: POSACONAZOLE
     Indication: ANTIFUNGAL PROPHYLAXIS
     Dosage: 300 MG, TWICE A DAY
     Route: 048
     Dates: start: 20170814, end: 20170814
  18. ZAVEDOS [Concomitant]
     Active Substance: IDARUBICIN
     Indication: ACUTE MYELOID LEUKAEMIA
     Dosage: 17.7 MG, ONCE DAILY
     Route: 042
     Dates: start: 20170814, end: 20170816
  19. LOPERAMIDE [Concomitant]
     Active Substance: LOPERAMIDE
     Indication: GASTROINTESTINAL DISORDER THERAPY
     Dosage: 2 CAPSULES, ONCE DAILY
     Route: 048
     Dates: start: 20170816, end: 20170902
  20. X PAIN [Concomitant]
     Indication: ANTIINFLAMMATORY THERAPY
  21. X PAIN [Concomitant]
     Indication: ANTIPYRESIS
  22. ALOXI [Concomitant]
     Active Substance: PALONOSETRON HYDROCHLORIDE
     Dosage: 0.25 MG, ONCE DAILY
     Route: 042
     Dates: start: 20170816, end: 20170816
  23. SMECTA [Concomitant]
     Active Substance: MONTMORILLONITE
     Indication: GASTROINTESTINAL DISORDER THERAPY
     Dosage: 3 G, THREE TIMES A DAY
     Route: 048
     Dates: start: 20170815, end: 20170831
  24. TASNA [Concomitant]
     Indication: ANTACID THERAPY
     Dosage: 1 TABLET, ONCE DAILY
     Route: 048
     Dates: start: 20170814
  25. LASIX [Concomitant]
     Active Substance: FUROSEMIDE
     Indication: OEDEMA
     Dosage: 1 AMPLE, ONCE DAILY
     Route: 042
     Dates: start: 20170829, end: 20170830
  26. FLAGYL (METRONIDAZOLE BENZOATE) [Concomitant]
     Active Substance: METRONIDAZOLE BENZOATE
     Indication: CYSTITIS
     Dosage: 1 DOSAGE FORM
     Route: 042
     Dates: start: 20170815, end: 20170830
  27. DICKNOL [Concomitant]
     Active Substance: DICLOFENAC DEANOL
     Indication: ANTIINFLAMMATORY THERAPY
  28. NOXAFIL [Suspect]
     Active Substance: POSACONAZOLE
     Dosage: 300 MG, ONCE A DAY
     Route: 048
     Dates: start: 20170815, end: 20170822
  29. TACENOL [Concomitant]
     Indication: ANTIINFLAMMATORY THERAPY
     Dosage: 1300 MG, ONCE DAILY
     Route: 048
     Dates: start: 20170815
  30. TRIDOL (TRAMADOL HYDROCHLORIDE) [Concomitant]
     Indication: ANTIINFLAMMATORY THERAPY
     Dosage: 50 MG, ONCE DAILY
     Route: 042
     Dates: start: 20170815, end: 20170815
  31. X PAIN [Concomitant]
     Indication: ANALGESIC THERAPY
     Dosage: 1 TABLET, THREE TIME A DAY
     Route: 048
     Dates: start: 20170820, end: 20170921
  32. LASIX [Concomitant]
     Active Substance: FUROSEMIDE
     Indication: DIURETIC THERAPY
     Dosage: 0.5 AMPLE, ONCE DAILY
     Route: 042
     Dates: start: 20170817, end: 20170819

REACTIONS (6)
  - Alanine aminotransferase increased [Unknown]
  - Rhinorrhoea [Recovered/Resolved]
  - Pyrexia [Recovered/Resolved]
  - Arthralgia [Not Recovered/Not Resolved]
  - Aspartate aminotransferase increased [Unknown]
  - Diarrhoea [Recovered/Resolved]

NARRATIVE: CASE EVENT DATE: 20170815
